FAERS Safety Report 4523248-4 (Version None)
Quarter: 2004Q4

REPORT INFORMATION
  Report Type: 
  Country: None (occurrence: None)
  Receive Date: 20041203
  Receipt Date: 20041117
  Transmission Date: 20050328
  Serious: Yes (Other)
  Sender: FDA-Public Use
  Company Number: 601440

PATIENT
  Age: 80 Year
  Sex: Male

DRUGS (1)
  1. TISSUCOL/TISSEL KIT STIM4 (2-COMP FIBRIN SEALANT, FREEZE-DRIED, VAPOR [Suspect]
     Indication: HERNIA REPAIR
     Dosage: 2 ML; TOPICAL
     Route: 061
     Dates: start: 20040727, end: 20040727

REACTIONS (2)
  - BLOOD PRESSURE FLUCTUATION [None]
  - POST PROCEDURAL COMPLICATION [None]
